FAERS Safety Report 12836901 (Version 3)
Quarter: 2017Q1

REPORT INFORMATION
  Report Type: Report from Study
  Country: US (occurrence: US)
  Receive Date: 20161011
  Receipt Date: 20170202
  Transmission Date: 20170428
  Serious: Yes (Other)
  Sender: FDA-Public Use
  Company Number: US-BIOGEN-2016BI00300445

PATIENT
  Age: 41 Year
  Sex: Female

DRUGS (2)
  1. TYSABRI [Suspect]
     Active Substance: NATALIZUMAB
     Indication: MULTIPLE SCLEROSIS
     Dosage: INFUSED OVER 1 HR
     Route: 042
     Dates: start: 20140131, end: 20151203
  2. TYSABRI [Suspect]
     Active Substance: NATALIZUMAB
     Dosage: INFUSED OVER 1 HR
     Route: 042
     Dates: start: 20160919

REACTIONS (4)
  - Latent tuberculosis [Recovered/Resolved]
  - Poor venous access [Recovered/Resolved]
  - Pneumonia [Not Recovered/Not Resolved]
  - Catheter site hypertrophy [Not Recovered/Not Resolved]

NARRATIVE: CASE EVENT DATE: 20140131
